FAERS Safety Report 6871590-4 (Version None)
Quarter: 2010Q3

REPORT INFORMATION
  Report Type: 
  Country: None (occurrence: None)
  Receive Date: 20100723
  Receipt Date: 20100720
  Transmission Date: 20110219
  Serious: Yes (Death, Hospitalization)
  Sender: FDA-Public Use
  Company Number: PHHO2008US14746

PATIENT
  Sex: Male

DRUGS (1)
  1. CERTICAN [Suspect]
     Indication: HEART TRANSPLANT
     Dosage: 0.5 MG, BID
     Route: 048
     Dates: start: 20080515, end: 20081203

REACTIONS (10)
  - ACIDOSIS [None]
  - BACTERIAL INFECTION [None]
  - CARDIOGENIC SHOCK [None]
  - DYSPNOEA [None]
  - HICCUPS [None]
  - HYPERKALAEMIA [None]
  - HYPOTENSION [None]
  - HYPOXIA [None]
  - RESPIRATORY DISTRESS [None]
  - SEPSIS [None]
